FAERS Safety Report 6784952-0 (Version None)
Quarter: 2010Q2

REPORT INFORMATION
  Report Type: 
  Country: None (occurrence: None)
  Receive Date: 20100622
  Receipt Date: 20100618
  Transmission Date: 20101027
  Serious: Yes (Other)
  Sender: FDA-Public Use
  Company Number: GB-WYE-G06166510

PATIENT

DRUGS (3)
  1. VENLAFAXINE HYDROCHLORIDE [Suspect]
     Dosage: UNKNOWN
     Route: 048
  2. TOPIRAMATE [Suspect]
     Dosage: UNKNOWN
  3. TOPAMAX [Suspect]
     Dosage: UNKNOWN
     Route: 048

REACTIONS (3)
  - MEDICATION ERROR [None]
  - PRODUCT PACKAGING ISSUE [None]
  - PRODUCT TAMPERING [None]
